FAERS Safety Report 7540758-6 (Version None)
Quarter: 2011Q2

REPORT INFORMATION
  Report Type: 
  Country: None (occurrence: None)
  Receive Date: 20110610
  Receipt Date: 20110606
  Transmission Date: 20111010
  Serious: Yes (Disabling)
  Sender: FDA-Public Use
  Company Number: GB-SP-2011-01803

PATIENT
  Sex: Male

DRUGS (6)
  1. TELMISARTAN [Concomitant]
  2. IMMUCYST [Suspect]
     Indication: PRODUCT USED FOR UNKNOWN INDICATION
     Dosage: NOT REPORTED
     Route: 043
  3. SODIUM CHLORIDE [Suspect]
     Indication: PRODUCT USED FOR UNKNOWN INDICATION
  4. IBUPROFEN [Concomitant]
  5. TRAMADOL HCL [Concomitant]
  6. ROSUVASTATIN [Concomitant]

REACTIONS (4)
  - RASH GENERALISED [None]
  - URTICARIA [None]
  - ADVERSE EVENT [None]
  - SWELLING [None]
